FAERS Safety Report 12093876 (Version 2)
Quarter: 2016Q1

REPORT INFORMATION
  Report Type: Spontaneous
  Country: JP (occurrence: JP)
  Receive Date: 20160219
  Receipt Date: 20160309
  Transmission Date: 20160526
  Serious: Yes (Other)
  Sender: FDA-Public Use
  Company Number: JP-SA-2016SA030586

PATIENT
  Age: 82 Year
  Sex: Male

DRUGS (2)
  1. IMMUCYST [Suspect]
     Active Substance: BACILLUS CALMETTE-GUERIN SUBSTRAIN CONNAUGHT LIVE ANTIGEN
     Indication: BLADDER CANCER
     Route: 043
     Dates: start: 201408, end: 201408
  2. IMMUCYST [Suspect]
     Active Substance: BACILLUS CALMETTE-GUERIN SUBSTRAIN CONNAUGHT LIVE ANTIGEN
     Indication: BLADDER CANCER
     Route: 043
     Dates: start: 201408, end: 201408

REACTIONS (7)
  - Cataract [Unknown]
  - Arthritis [Recovering/Resolving]
  - Conjunctival hyperaemia [Recovering/Resolving]
  - Reiter^s syndrome [Unknown]
  - Arthralgia [Unknown]
  - Dysuria [Unknown]
  - Urethritis [Recovering/Resolving]

NARRATIVE: CASE EVENT DATE: 201409
